FAERS Safety Report 10149177 (Version 2)
Quarter: 2014Q2

REPORT INFORMATION
  Report Type: Spontaneous
  Country: BR (occurrence: BR)
  Receive Date: 20140502
  Receipt Date: 20140630
  Transmission Date: 20141212
  Serious: Yes (Death)
  Sender: FDA-Public Use
  Company Number: BR-ELI_LILLY_AND_COMPANY-BR201404009333

PATIENT
  Sex: Male

DRUGS (1)
  1. PROZAC [Suspect]
     Indication: PRODUCT USED FOR UNKNOWN INDICATION
     Dosage: UNK, UNKNOWN
     Route: 065

REACTIONS (23)
  - Death [Fatal]
  - Vertigo [Unknown]
  - Hypokinesia [Unknown]
  - Bradyphrenia [Unknown]
  - Muscular weakness [Unknown]
  - Myalgia [Unknown]
  - Dry mouth [Unknown]
  - Chills [Unknown]
  - Tremor [Unknown]
  - Weight decreased [Unknown]
  - Decreased appetite [Unknown]
  - Dysgeusia [Unknown]
  - Somnolence [Unknown]
  - Abnormal dreams [Unknown]
  - Anxiety [Unknown]
  - Headache [Unknown]
  - Nervousness [Unknown]
  - Fatigue [Unknown]
  - Rash [Unknown]
  - Erythema multiforme [Unknown]
  - Feeling abnormal [Unknown]
  - Insomnia [Unknown]
  - Muscle contractions involuntary [Unknown]
